FAERS Safety Report 25250587 (Version 4)
Quarter: 2025Q2

REPORT INFORMATION
  Report Type: Spontaneous
  Country: GB (occurrence: GB)
  Receive Date: 20250429
  Receipt Date: 20250613
  Transmission Date: 20250717
  Serious: Yes (Hospitalization, Other)
  Sender: REGENERON
  Company Number: GB-SA-2025SA107699

PATIENT
  Age: 75 Year
  Sex: Female

DRUGS (1)
  1. PRALUENT [Suspect]
     Active Substance: ALIROCUMAB
     Indication: Type IIa hyperlipidaemia
     Dosage: 75 MG, QOW SOLUTION FOR INJECTION
     Route: 058

REACTIONS (9)
  - Cerebral haemorrhage [Not Recovered/Not Resolved]
  - Diabetes mellitus [Unknown]
  - Diverticulitis [Unknown]
  - Cerebral amyloid angiopathy [Not Recovered/Not Resolved]
  - Abdominal discomfort [Unknown]
  - Flushing [Unknown]
  - Body temperature increased [Unknown]
  - Hypertension [Not Recovered/Not Resolved]
  - Diarrhoea [Unknown]
